FAERS Safety Report 15540704 (Version 1)
Quarter: 2018Q4

REPORT INFORMATION
  Report Type: Spontaneous
  Country: HU (occurrence: HU)
  Receive Date: 20181023
  Receipt Date: 20181023
  Transmission Date: 20190205
  Serious: Yes (Death, Other)
  Sender: FDA-Public Use
  Company Number: HU-INCYTE CORPORATION-2018IN010653

PATIENT

DRUGS (4)
  1. SYNCUMAR [Concomitant]
     Active Substance: ACENOCOUMAROL
     Indication: PRODUCT USED FOR UNKNOWN INDICATION
     Dosage: UNK
     Route: 065
     Dates: start: 2008
  2. JAKAVI [Suspect]
     Active Substance: RUXOLITINIB
     Indication: MYELOFIBROSIS
     Dosage: UNK
     Route: 065
     Dates: start: 2014, end: 201804
  3. JAKAVI [Suspect]
     Active Substance: RUXOLITINIB
     Indication: MYELODYSPLASTIC SYNDROME
  4. TASIGNA [Suspect]
     Active Substance: NILOTINIB
     Indication: CHRONIC MYELOID LEUKAEMIA
     Dosage: UNK
     Route: 065
     Dates: start: 2014, end: 201804

REACTIONS (12)
  - Myocardial ischaemia [Unknown]
  - Cardiac failure [Fatal]
  - Atrial fibrillation [Unknown]
  - Myelodysplastic syndrome [Unknown]
  - Myelofibrosis [Unknown]
  - General physical health deterioration [Unknown]
  - Pyelonephritis chronic [Unknown]
  - Product use in unapproved indication [Unknown]
  - Immunoglobulins abnormal [Unknown]
  - Diabetes mellitus [Unknown]
  - Chronic myeloid leukaemia [Unknown]
  - Renal failure [Unknown]

NARRATIVE: CASE EVENT DATE: 201809
